FAERS Safety Report 7981156-0 (Version None)
Quarter: 2011Q4

REPORT INFORMATION
  Report Type: 
  Country: None (occurrence: None)
  Receive Date: 20111212
  Receipt Date: 20111207
  Transmission Date: 20120403
  Serious: Yes (Life-Threatening)
  Sender: FDA-Public Use
  Company Number: 2011SP057274

PATIENT
  Age: 74 Year
  Sex: Male

DRUGS (4)
  1. DOBUTAMINE (DOBUTAMINE) [Suspect]
     Indication: PRODUCT USED FOR UNKNOWN INDICATION
     Dosage: INDRP
  2. ROCURONIUM BROMIDE [Suspect]
     Indication: NEUROMUSCULAR BLOCKING THERAPY
     Dosage: IV
     Route: 042
  3. MIDAZOLAM [Suspect]
     Indication: INDUCTION OF ANAESTHESIA
  4. FENTANYL [Suspect]
     Indication: INDUCTION OF ANAESTHESIA

REACTIONS (6)
  - URINE OUTPUT DECREASED [None]
  - ATRIOVENTRICULAR BLOCK COMPLETE [None]
  - NO THERAPEUTIC RESPONSE [None]
  - VENTRICULAR TACHYCARDIA [None]
  - ACIDOSIS [None]
  - HYPERGLYCAEMIA [None]
